FAERS Safety Report 8746766 (Version 2)
Quarter: 2013Q1

REPORT INFORMATION
  Report Type: Spontaneous
  Country: US (occurrence: US)
  Receive Date: 20120827
  Receipt Date: 20130222
  Transmission Date: 20140127
  Serious: Yes (Death, Congenital Anomaly, Other)
  Sender: FDA-Public Use
  Company Number: US-PFIZER INC-2012208163

PATIENT
  Sex: Male

DRUGS (12)
  1. ZOLOFT [Suspect]
     Indication: ANXIETY
     Dosage: 100 MG, UNK
     Route: 064
  2. ZOLOFT [Suspect]
     Indication: DEPRESSION
     Dosage: UNK
     Route: 064
     Dates: start: 2009
  3. ZOLOFT [Suspect]
     Indication: AFFECTIVE DISORDER
  4. SERTRALINE HCL [Suspect]
     Indication: ANXIETY
     Dosage: UNK
     Route: 064
     Dates: start: 2009
  5. SERTRALINE HCL [Suspect]
     Indication: DEPRESSION
  6. SERTRALINE HCL [Suspect]
     Indication: AFFECTIVE DISORDER
  7. PRENATAL VITAMINS [Concomitant]
     Dosage: UNK
     Route: 064
     Dates: start: 20091120, end: 20100723
  8. CLONAZEPAM [Concomitant]
     Dosage: 0.5 MG, UNK
     Route: 064
     Dates: end: 20091118
  9. HYDROCODONE/IBUPROFEN [Concomitant]
     Dosage: UNK
     Route: 064
     Dates: end: 20091118
  10. VALTREX [Concomitant]
     Dosage: UNK
     Route: 064
  11. LEXAPRO [Concomitant]
     Dosage: UNK
     Route: 064
     Dates: end: 20091118
  12. VICODIN [Concomitant]
     Dosage: UNK
     Route: 064
     Dates: end: 20091118

REACTIONS (6)
  - Maternal exposure timing unspecified [Fatal]
  - Multiple cardiac defects [Fatal]
  - Ventricular septal defect [Unknown]
  - Patent ductus arteriosus [Unknown]
  - Interruption of aortic arch [Unknown]
  - Pulmonary artery stenosis congenital [Unknown]
